FAERS Safety Report 8593584 (Version 3)
Quarter: 2014Q1

REPORT INFORMATION
  Report Type: Spontaneous
  Country: US (occurrence: US)
  Receive Date: 20120604
  Receipt Date: 20140107
  Transmission Date: 20141002
  Serious: Yes (Disabling, Other)
  Sender: FDA-Public Use
  Company Number: US-ASTRAZENECA-2012SE34947

PATIENT
  Age: 42 Year
  Sex: Female
  Weight: 74.8 kg

DRUGS (19)
  1. NEXIUM [Suspect]
     Indication: GASTROOESOPHAGEAL REFLUX DISEASE
     Route: 048
     Dates: start: 1995
  2. NEXIUM [Suspect]
     Indication: GASTROOESOPHAGEAL REFLUX DISEASE
     Route: 048
     Dates: start: 20060128
  3. MYLANTA [Concomitant]
  4. GAVISCON OTC [Concomitant]
  5. DIOVAN HCT [Concomitant]
     Indication: HYPERTENSION
     Dosage: 320-25 MG
     Dates: start: 20110803
  6. SOMA [Concomitant]
     Indication: MUSCLE RELAXANT THERAPY
  7. DIAZEPAM [Concomitant]
     Indication: NEURALGIA
  8. LORATAB [Concomitant]
     Indication: PAIN IN EXTREMITY
  9. IBUPROFEN [Concomitant]
     Indication: PAIN
  10. IBUPROFEN [Concomitant]
     Indication: INFLAMMATION
  11. LASIX [Concomitant]
     Indication: FLUID RETENTION
  12. PREMARIN [Concomitant]
     Dates: start: 2006
  13. LEVAQUIN [Concomitant]
     Dates: start: 20060119
  14. DOXYCYCLINE [Concomitant]
     Dates: start: 20070129
  15. PREDNISONE [Concomitant]
     Dates: start: 20070129
  16. LYRICA [Concomitant]
     Dates: start: 20120102
  17. LIPITOR [Concomitant]
     Dates: start: 20111003
  18. HYDROCODONE/ACETAMINOPHEN [Concomitant]
     Dates: start: 20111013
  19. BUPROPION XL [Concomitant]
     Dates: start: 20111016

REACTIONS (14)
  - Osteoarthritis [Unknown]
  - Exostosis [Unknown]
  - Meniscus injury [Unknown]
  - Spinal osteoarthritis [Unknown]
  - Dislocation of vertebra [Unknown]
  - Osteoporosis [Unknown]
  - Multiple fractures [Unknown]
  - Rotator cuff syndrome [Unknown]
  - Bone disorder [Unknown]
  - Ankylosing spondylitis [Unknown]
  - Arthritis [Unknown]
  - Vitamin D deficiency [Unknown]
  - Intervertebral disc degeneration [Unknown]
  - Cervical spinal stenosis [Unknown]
